FAERS Safety Report 18744051 (Version 1)
Quarter: 2021Q1

REPORT INFORMATION
  Report Type: Report from Study
  Country: US (occurrence: US)
  Receive Date: 20210114
  Receipt Date: 20210114
  Transmission Date: 20210419
  Serious: Yes (Other)
  Sender: FDA-Public Use
  Company Number: US-REGENERON PHARMACEUTICALS, INC.-2021-11249

PATIENT

DRUGS (1)
  1. CASIRIVIMAB AND IMDEVIMAB [Suspect]
     Active Substance: CASIRIVIMAB\IMDEVIMAB
     Indication: COVID-19
     Dosage: CASIRIVIMAB, 300 MG/2.5 ML
     Route: 030
     Dates: start: 20201230, end: 20201230

REACTIONS (8)
  - Hypertension [Recovered/Resolved]
  - Incorrect route of product administration [Unknown]
  - Pyrexia [Recovered/Resolved]
  - Anxiety [Recovered/Resolved]
  - Wrong product administered [Unknown]
  - Injection site pain [Recovered/Resolved]
  - Injection site pain [Unknown]
  - Incorrect dose administered [Unknown]

NARRATIVE: CASE EVENT DATE: 20201230
